FAERS Safety Report 17326602 (Version 1)
Quarter: 2020Q1

REPORT INFORMATION
  Report Type: Spontaneous
  Country: US (occurrence: US)
  Receive Date: 20200127
  Receipt Date: 20200127
  Transmission Date: 20200409
  Serious: Yes (Hospitalization)
  Sender: FDA-Public Use
  Company Number: US-PIRAMAL ENTERPRISES LIMITED-2019-PEL-000290

PATIENT

DRUGS (1)
  1. GABLOFEN [Suspect]
     Active Substance: BACLOFEN
     Indication: MUSCLE SPASTICITY
     Dosage: 1234.6 MICROGRAM, PER DAY
     Route: 037

REACTIONS (3)
  - Device physical property issue [Recovered/Resolved]
  - Drug withdrawal syndrome [Recovered/Resolved]
  - Muscle tightness [Recovered/Resolved]
